FAERS Safety Report 13766591 (Version 2)
Quarter: 2017Q3

REPORT INFORMATION
  Report Type: Spontaneous
  Country: CZ (occurrence: CZ)
  Receive Date: 20170719
  Receipt Date: 20170731
  Transmission Date: 20171127
  Serious: Yes (Hospitalization, Other)
  Sender: FDA-Public Use
  Company Number: CZ-AMGEN-CZESP2017107015

PATIENT
  Age: 66 Year
  Sex: Female
  Weight: 74 kg

DRUGS (9)
  1. SECTRAL [Concomitant]
     Active Substance: ACEBUTOLOL HYDROCHLORIDE
     Dosage: 400 MG, UNK
  2. MEDROL [Concomitant]
     Active Substance: METHYLPREDNISOLONE
     Dosage: 4 MG, UNK
  3. LORADUR [Concomitant]
     Dosage: UNK
  4. ENBREL [Suspect]
     Active Substance: ETANERCEPT
     Indication: PSORIATIC ARTHROPATHY
     Dosage: 50 MG, UNK
     Route: 058
     Dates: start: 20160614, end: 20170621
  5. METOJECT [Concomitant]
     Active Substance: METHOTREXATE SODIUM
     Dosage: 7.5 MG, UNK
  6. EUTHYROX [Concomitant]
     Active Substance: LEVOTHYROXINE SODIUM
     Dosage: 88 UG, UNK
  7. GLYCLADA [Concomitant]
     Active Substance: GLICLAZIDE
     Dosage: UNK
  8. ACIDUM FOLICUM [Concomitant]
     Active Substance: FOLIC ACID
     Dosage: UNK
  9. LANZUL [Concomitant]
     Active Substance: LANSOPRAZOLE
     Dosage: 15 MG, UNK

REACTIONS (2)
  - Spinal column stenosis [Unknown]
  - Spinal pain [Recovered/Resolved]

NARRATIVE: CASE EVENT DATE: 20170422
